FAERS Safety Report 5472087-9 (Version None)
Quarter: 2007Q3

REPORT INFORMATION
  Report Type: 
  Country: None (occurrence: None)
  Receive Date: 20070925
  Receipt Date: 20070906
  Transmission Date: 20080115
  Serious: Yes (Death, Hospitalization)
  Sender: FDA-Public Use
  Company Number: 018313

PATIENT
  Age: 77 Year
  Sex: Male

DRUGS (2)
  1. EXTENDED PHENYTOIN SODIUM [Suspect]
     Indication: CONVULSION
  2. CASPOGUNGIN (CASPOFUNGIN) [Suspect]
     Indication: FUNGAL PERITONITIS
     Dosage: 50-70 MG, INTRAVENOUS
     Route: 042

REACTIONS (8)
  - DRUG INTERACTION [None]
  - INCORRECT DOSE ADMINISTERED [None]
  - KLEBSIELLA INFECTION [None]
  - LOBAR PNEUMONIA [None]
  - MULTI-ORGAN FAILURE [None]
  - PYREXIA [None]
  - RESPIRATORY DISTRESS [None]
  - SYSTEMIC CANDIDA [None]
